FAERS Safety Report 5441554-6 (Version None)
Quarter: 2007Q3

REPORT INFORMATION
  Report Type: 
  Country: None (occurrence: None)
  Receive Date: 20070904
  Receipt Date: 20070822
  Transmission Date: 20080115
  Serious: Yes (Hospitalization)
  Sender: FDA-Public Use
  Company Number: GB-BRISTOL-MYERS SQUIBB COMPANY-13895339

PATIENT
  Age: 38 Year
  Sex: Male

DRUGS (8)
  1. CYCLOPHOSPHAMIDE [Suspect]
     Indication: ISCHAEMIA
  2. CLOPIDOGREL BISULFATE [Suspect]
     Indication: SYSTEMIC SCLEROSIS
     Route: 048
  3. NIFEDIPINE [Suspect]
     Indication: SYSTEMIC SCLEROSIS
  4. FLUOXETINE [Suspect]
     Indication: SYSTEMIC SCLEROSIS
  5. ILOPROST [Suspect]
     Indication: SYSTEMIC SCLEROSIS
  6. LANSOPRAZOLE [Suspect]
     Indication: SYSTEMIC SCLEROSIS
  7. LOSARTAN POTASSIUM [Suspect]
     Indication: SYSTEMIC SCLEROSIS
  8. METHYLPREDNISOLONE 16MG TAB [Suspect]
     Indication: ISCHAEMIA

REACTIONS (6)
  - ANAEMIA [None]
  - CYANOSIS [None]
  - DRUG INEFFECTIVE [None]
  - GANGRENE [None]
  - PERFORMANCE STATUS DECREASED [None]
  - SYSTEMIC SCLEROSIS [None]
